FAERS Safety Report 8339134-8 (Version None)
Quarter: 2012Q2

REPORT INFORMATION
  Report Type: 
  Country: None (occurrence: None)
  Receive Date: 20120507
  Receipt Date: 20120503
  Transmission Date: 20120825
  Serious: No
  Sender: FDA-Public Use
  Company Number: US-PFIZER INC-2012109193

PATIENT
  Sex: Female
  Weight: 63.492 kg

DRUGS (3)
  1. OMEGA-3 TRIGLYCERIDES [Concomitant]
     Dosage: UNK
  2. ALPRAZOLAM [Concomitant]
     Dosage: UNK
  3. CHANTIX [Suspect]
     Indication: SMOKING CESSATION THERAPY
     Dosage: UNK
     Route: 048
     Dates: start: 20060101

REACTIONS (2)
  - GASTRIC DISORDER [None]
  - GASTROINTESTINAL DISORDER [None]
